FAERS Safety Report 4704847-3 (Version None)
Quarter: 2005Q3

REPORT INFORMATION
  Report Type: 
  Country: None (occurrence: None)
  Receive Date: 20050701
  Receipt Date: 20050324
  Transmission Date: 20060218
  Serious: Yes (Other)
  Sender: FDA-Public Use
  Company Number: US-ABBOTT-05P-163-0295102-00

PATIENT
  Sex: Female
  Weight: 81.72 kg

DRUGS (3)
  1. BIAXIN [Suspect]
     Indication: MYCOBACTERIUM MARINUM INFECTION
     Route: 048
     Dates: start: 20040101, end: 20040501
  2. EYE DROP [Concomitant]
     Indication: GLAUCOMA
  3. LEXAPRO [Concomitant]
     Indication: DRUG USE FOR UNKNOWN INDICATION
     Route: 048

REACTIONS (1)
  - CHRONIC MYELOID LEUKAEMIA [None]
